FAERS Safety Report 4404110-4 (Version None)
Quarter: 2004Q3

REPORT INFORMATION
  Report Type: 
  Country: None (occurrence: None)
  Receive Date: 20040719
  Receipt Date: 20040624
  Transmission Date: 20050211
  Serious: Yes (Hospitalization)
  Sender: FDA-Public Use
  Company Number: 371231

PATIENT
  Age: 55 Year
  Sex: Male

DRUGS (1)
  1. NEOTIGASON (ACITRETIN) 10 MG [Suspect]
     Indication: PSORIASIS
     Dosage: ORAL
     Route: 048
     Dates: start: 20001115, end: 20030515

REACTIONS (1)
  - MYOCARDIAL INFARCTION [None]
